FAERS Safety Report 17306111 (Version 1)
Quarter: 2020Q1

REPORT INFORMATION
  Report Type: Spontaneous
  Country: BG (occurrence: BG)
  Receive Date: 20200123
  Receipt Date: 20200123
  Transmission Date: 20200409
  Serious: Yes (Hospitalization)
  Sender: FDA-Public Use
  Company Number: BG-TEVA-2020-BG-1171879

PATIENT
  Age: 74 Year
  Sex: Female

DRUGS (3)
  1. DIPERAM [AMLODIPINE\VALSARTAN] [Suspect]
     Active Substance: AMLODIPINE\VALSARTAN
     Indication: HYPERTENSION
     Route: 048
     Dates: end: 20190723
  2. OLMESARTAN10 MG [Suspect]
     Active Substance: OLMESARTAN
     Indication: HYPERTENSION
     Dosage: A TABLET DAILY
     Route: 048
     Dates: start: 20170620, end: 20170723
  3. VALTENSIN [Suspect]
     Active Substance: VALSARTAN
     Indication: HYPERTENSION
     Dosage: 1 TABLET DAILY
     Route: 048
     Dates: start: 20170716, end: 20180923

REACTIONS (1)
  - Malignant melanoma [Recovered/Resolved]
